FAERS Safety Report 4617769-3 (Version None)
Quarter: 2005Q1

REPORT INFORMATION
  Report Type: 
  Country: None (occurrence: None)
  Receive Date: 20050324
  Receipt Date: 20050309
  Transmission Date: 20050727
  Serious: Yes (Hospitalization)
  Sender: FDA-Public Use
  Company Number: US-GLAXOSMITHKLINE-A0548993A

PATIENT
  Age: 47 Year
  Sex: Male
  Weight: 93 kg

DRUGS (3)
  1. CITRUCEL SUGAR-FREE SUSPENSION ORANGE [Suspect]
     Route: 048
     Dates: start: 20020101
  2. CRESTOR [Concomitant]
     Dosage: 10MG PER DAY
     Route: 048
  3. VERAPAMIL [Concomitant]
     Dosage: 240MG TWICE PER DAY
     Route: 048

REACTIONS (6)
  - BLOOD GLUCOSE INCREASED [None]
  - CHOLELITHIASIS [None]
  - DIABETES MELLITUS [None]
  - HERNIA [None]
  - NAUSEA [None]
  - PAIN [None]
